FAERS Safety Report 25385780 (Version 1)
Quarter: 2025Q2

REPORT INFORMATION
  Report Type: Spontaneous
  Country: US (occurrence: None)
  Receive Date: 20250531
  Receipt Date: 20250531
  Transmission Date: 20250716
  Serious: Yes (Other)
  Sender: FDA-CTU
  Company Number: None

PATIENT
  Sex: Female

DRUGS (1)
  1. CITALOPRAM [Suspect]
     Active Substance: CITALOPRAM
     Dates: start: 20170524, end: 20200505

REACTIONS (10)
  - Sexual dysfunction [None]
  - Emotional disorder [None]
  - Sensory disturbance [None]
  - Hypoaesthesia [None]
  - Persistent genital arousal disorder [None]
  - Loss of libido [None]
  - Blunted affect [None]
  - Brain fog [None]
  - Anhedonia [None]
  - Disability [None]

NARRATIVE: CASE EVENT DATE: 20190319
